FAERS Safety Report 5869536-0 (Version None)
Quarter: 2008Q3

REPORT INFORMATION
  Report Type: 
  Country: None (occurrence: None)
  Receive Date: 20080904
  Receipt Date: 20080827
  Transmission Date: 20090109
  Serious: Yes (Other)
  Sender: FDA-Public Use
  Company Number: GB-JNJFOC-20080701176

PATIENT
  Sex: Female
  Weight: 18.4 kg

DRUGS (2)
  1. RISPERDAL [Suspect]
     Indication: DECREASED APPETITE
     Route: 048
  2. RISPERDAL [Suspect]
     Indication: AUTISM
     Route: 048

REACTIONS (1)
  - IRON DEFICIENCY [None]
